FAERS Safety Report 15591644 (Version 1)
Quarter: 2018Q4

REPORT INFORMATION
  Report Type: Spontaneous
  Country: US (occurrence: None)
  Receive Date: 20181102
  Receipt Date: 20181102
  Transmission Date: 20190205
  Serious: Yes (Life-Threatening, Hospitalization, Other)
  Sender: FDA-Public Use
  Company Number: 1053442-18-00001

PATIENT
  Age: 63 Year
  Sex: Female

DRUGS (1)
  1. ANXIETY AND NERVOUSNESS (HOMEOPATHICS) [Suspect]
     Active Substance: HOMEOPATHICS

REACTIONS (4)
  - Sepsis [None]
  - Pancreatic cyst [None]
  - Pancreatitis acute [None]
  - Pancreatic necrosis [None]

NARRATIVE: CASE EVENT DATE: 20170908
